FAERS Safety Report 4738410-5 (Version None)
Quarter: 2005Q3

REPORT INFORMATION
  Report Type: 
  Country: None (occurrence: None)
  Receive Date: 20050809
  Receipt Date: 20050803
  Transmission Date: 20060218
  Serious: Yes (Death, Hospitalization)
  Sender: FDA-Public Use
  Company Number: FR-GLAXOSMITHKLINE-B0389988A

PATIENT
  Age: 72 Year
  Sex: Female

DRUGS (10)
  1. AZANTAC [Suspect]
     Route: 042
     Dates: start: 20050531, end: 20050724
  2. LOVENOX [Suspect]
     Dosage: 40MG PER DAY
     Route: 042
     Dates: end: 20050710
  3. TIENAM [Suspect]
     Dosage: 500MG FOUR TIMES PER DAY
     Route: 042
     Dates: start: 20050707, end: 20050712
  4. SANDOSTATIN [Suspect]
     Dosage: 100MCG THREE TIMES PER DAY
     Route: 058
  5. TRIFLUCAN [Suspect]
     Dosage: 800MG PER DAY
     Route: 042
     Dates: start: 20050707, end: 20050713
  6. VANCOMYCIN [Suspect]
     Dosage: 1.5MG PER DAY
     Route: 042
     Dates: start: 20050707, end: 20050711
  7. ACTRAPID [Concomitant]
     Indication: RESUSCITATION
     Dates: start: 20050601
  8. HYDROCORTISONE [Concomitant]
     Dosage: 200MG PER DAY
     Dates: start: 20050601, end: 20050714
  9. SOLU-MEDROL [Concomitant]
     Route: 065
     Dates: start: 20050714
  10. ORGARAN [Concomitant]
     Dates: start: 20050711, end: 20050724

REACTIONS (10)
  - ACINETOBACTER INFECTION [None]
  - ANAEMIA MACROCYTIC [None]
  - FISTULA [None]
  - HAEMOPHILUS INFECTION [None]
  - MULTI-ORGAN FAILURE [None]
  - PNEUMOCOCCAL INFECTION [None]
  - RESPIRATORY DISTRESS [None]
  - RESPIRATORY FAILURE [None]
  - SEPTIC SHOCK [None]
  - STAPHYLOCOCCAL BACTERAEMIA [None]
